FAERS Safety Report 4301090-7 (Version None)
Quarter: 2004Q1

REPORT INFORMATION
  Report Type: 
  Country: None (occurrence: None)
  Receive Date: 20040218
  Receipt Date: 20040209
  Transmission Date: 20041129
  Serious: Yes (Death)
  Sender: FDA-Public Use
  Company Number: 2004198192US

PATIENT
  Age: 27 Year
  Sex: Female

DRUGS (2)
  1. FRAGMIN [Suspect]
     Indication: THROMBOSIS PROPHYLAXIS
  2. TISSUE PLASMINOGEN ACTIVATOR, RECOMBINATIVE (ALTEPLASE) [Concomitant]

REACTIONS (5)
  - CEREBRAL INFARCTION [None]
  - DRUG INEFFECTIVE [None]
  - HEPATIC VEIN OCCLUSION [None]
  - MESENTERIC OCCLUSION [None]
  - SUPERIOR SAGITTAL SINUS THROMBOSIS [None]
